FAERS Safety Report 25480507 (Version 1)
Quarter: 2025Q2

REPORT INFORMATION
  Report Type: Spontaneous
  Country: CO (occurrence: CO)
  Receive Date: 20250625
  Receipt Date: 20250625
  Transmission Date: 20250717
  Serious: Yes (Hospitalization, Other)
  Sender: SANOFI AVENTIS
  Company Number: CO-SA-2025SA169176

PATIENT
  Age: 52 Year
  Sex: Female

DRUGS (4)
  1. LEMTRADA [Suspect]
     Active Substance: ALEMTUZUMAB
     Indication: Multiple sclerosis
     Dosage: 12 MG, QD
     Route: 042
     Dates: start: 20210923, end: 20210927
  2. LEMTRADA [Suspect]
     Active Substance: ALEMTUZUMAB
     Dosage: 12 MG, QD
     Route: 042
     Dates: start: 202208, end: 202208
  3. LYRICA [Concomitant]
     Active Substance: PREGABALIN
     Indication: Neurogenic shock
     Dosage: 1 DF, Q8H
  4. CLONAZEPAM [Concomitant]
     Active Substance: CLONAZEPAM
     Indication: Sleep disorder
     Dosage: 10 DF, QD
     Route: 048

REACTIONS (15)
  - Optic neuritis [Recovered/Resolved with Sequelae]
  - Discomfort [Not Recovered/Not Resolved]
  - Sensory loss [Not Recovered/Not Resolved]
  - Inflammation [Not Recovered/Not Resolved]
  - Spinal pain [Not Recovered/Not Resolved]
  - Breast pain [Unknown]
  - Breast swelling [Unknown]
  - Breast cyst [Not Recovered/Not Resolved]
  - Visual impairment [Unknown]
  - Weight decreased [Unknown]
  - Muscle spasms [Not Recovered/Not Resolved]
  - Nausea [Unknown]
  - Fatigue [Not Recovered/Not Resolved]
  - Headache [Not Recovered/Not Resolved]
  - White blood cell count decreased [Unknown]

NARRATIVE: CASE EVENT DATE: 20211001
